FAERS Safety Report 5424820-X (Version None)
Quarter: 2007Q3

REPORT INFORMATION
  Report Type: 
  Country: None (occurrence: None)
  Receive Date: 20070824
  Receipt Date: 20070822
  Transmission Date: 20080115
  Serious: Yes (Life-Threatening)
  Sender: FDA-Public Use
  Company Number: FR-BRISTOL-MYERS SQUIBB COMPANY-12642377

PATIENT
  Age: 64 Year
  Sex: Male
  Weight: 90 kg

DRUGS (4)
  1. AXEPIM INJ 2 GM [Suspect]
     Indication: LOCALISED INFECTION
     Route: 042
     Dates: start: 20040611, end: 20040612
  2. AMIKLIN [Concomitant]
     Indication: LOCALISED INFECTION
     Dates: start: 20040608, end: 20040611
  3. TAZOCILLINE [Concomitant]
     Indication: LOCALISED INFECTION
     Dates: start: 20040608, end: 20040611
  4. TARGOCID [Concomitant]
     Indication: LOCALISED INFECTION
     Route: 042
     Dates: start: 20040608

REACTIONS (3)
  - DERMATITIS BULLOUS [None]
  - ERYTHEMA [None]
  - PURPURA [None]
